FAERS Safety Report 8922880 (Version 1)
Quarter: 2012Q4

REPORT INFORMATION
  Report Type: 
  Country: US (occurrence: US)
  Receive Date: 20121123
  Receipt Date: 20121123
  Transmission Date: 20130627
  Serious: Yes (Other)
  Sender: FDA-Public Use
  Company Number: PHHY2012US106260

PATIENT
  Sex: Male

DRUGS (1)
  1. DICLOFENAC [Suspect]

REACTIONS (1)
  - Haemorrhage [Unknown]
